FAERS Safety Report 23320926 (Version 1)
Quarter: 2023Q4

REPORT INFORMATION
  Report Type: Spontaneous
  Country: US (occurrence: US)
  Receive Date: 20231220
  Receipt Date: 20231220
  Transmission Date: 20240110
  Serious: No
  Sender: FDA-Public Use
  Company Number: US-INCYTE CORPORATION-2023IN012901

PATIENT

DRUGS (2)
  1. JAKAFI [Suspect]
     Active Substance: RUXOLITINIB
     Indication: Acute lymphocytic leukaemia
     Dosage: 100 MILLIGRAM, BID, FOR 14 DAYS, THEN HOLD FOR 14 DAYS
     Route: 048
     Dates: start: 202303
  2. JAKAFI [Suspect]
     Active Substance: RUXOLITINIB
     Indication: Acute leukaemia

REACTIONS (1)
  - Off label use [Unknown]

NARRATIVE: CASE EVENT DATE: 20230301
